FAERS Safety Report 25104802 (Version 1)
Quarter: 2025Q1

REPORT INFORMATION
  Report Type: Spontaneous
  Country: GB (occurrence: GB)
  Receive Date: 20250321
  Receipt Date: 20250321
  Transmission Date: 20250408
  Serious: Yes (Hospitalization, Other)
  Sender: AUROBINDO
  Company Number: GB-MLMSERVICE-20250227-PI431620-00214-1

PATIENT
  Age: 41 Year
  Sex: Female

DRUGS (2)
  1. MEROPENEM [Suspect]
     Active Substance: MEROPENEM
     Indication: Embolic cerebral infarction
     Dosage: 500 MILLIGRAM, FOUR TIMES/DAY
     Route: 042
  2. MEROPENEM [Suspect]
     Active Substance: MEROPENEM
     Indication: Encephalitis
     Dosage: 2 GRAM, 3 TIMES A DAY
     Route: 042

REACTIONS (3)
  - Leukopenia [Recovering/Resolving]
  - Acute kidney injury [Recovering/Resolving]
  - Toxic encephalopathy [Unknown]
